FAERS Safety Report 21909417 (Version 1)
Quarter: 2023Q1

REPORT INFORMATION
  Report Type: Spontaneous
  Country: SE (occurrence: SE)
  Receive Date: 20230125
  Receipt Date: 20230125
  Transmission Date: 20230417
  Serious: Yes (Other)
  Sender: FDA-Public Use
  Company Number: SE-TEVA-2023-SE-2844936

PATIENT
  Age: 50 Year
  Sex: Female

DRUGS (1)
  1. OXALIPLATIN [Suspect]
     Active Substance: OXALIPLATIN
     Indication: Product used for unknown indication
     Dosage: CDF-50080000?POWDER AND SOLVENT FOR SOLUTION FOR INJECTION/INFUSION
     Route: 042

REACTIONS (2)
  - Enterocolitis [None]
  - Neuropathy peripheral [None]
